FAERS Safety Report 8031564 (Version 6)
Quarter: 2014Q2

REPORT INFORMATION
  Report Type: Spontaneous
  Country: US (occurrence: US)
  Receive Date: 20110712
  Receipt Date: 20140523
  Transmission Date: 20141212
  Serious: Yes (Death, Hospitalization)
  Sender: FDA-Public Use
  Company Number: US-B.I. PHARMACEUTICALS,INC./RIDGEFIELD-2011-BP-17401BP

PATIENT
  Age: 78 Year
  Sex: Male
  Weight: 96.62 kg

DRUGS (12)
  1. PRADAXA [Suspect]
     Indication: ATRIAL FIBRILLATION
     Dosage: 300 MG
     Route: 048
     Dates: start: 20110425, end: 20110624
  2. COUMADIN [Suspect]
     Indication: PRODUCT USED FOR UNKNOWN INDICATION
     Dosage: 10 MG
     Route: 048
     Dates: start: 20110623
  3. ANTACID [Concomitant]
     Indication: DYSPEPSIA
     Route: 065
  4. LIPITOR [Concomitant]
     Dosage: 10 MG
     Route: 048
  5. JANUMET [Concomitant]
     Dosage: DOSE PER APPLICATION AND DAILY DOSE: 50/500 MG DAILY
     Route: 048
  6. KLOR-CON M10 [Concomitant]
     Dosage: 10 MEQ
     Route: 048
  7. BETAPACE [Concomitant]
     Dosage: 20 MG
     Route: 048
  8. ATACAND [Concomitant]
     Dosage: 4 MG
     Route: 048
  9. LASIX [Concomitant]
     Dosage: 40 MG
     Route: 048
  10. DIGOXIN [Concomitant]
     Dosage: 0.125 MG
     Route: 048
  11. IRON [Concomitant]
     Dosage: 325 MG
     Route: 048
  12. ASA [Concomitant]
     Dosage: 81 MG
     Route: 048

REACTIONS (6)
  - Lower gastrointestinal haemorrhage [Fatal]
  - Anaemia [Unknown]
  - Hypovolaemic shock [Unknown]
  - Coagulopathy [Unknown]
  - Shock haemorrhagic [Unknown]
  - Abdominal discomfort [Unknown]
